FAERS Safety Report 5080417-5 (Version None)
Quarter: 2006Q3

REPORT INFORMATION
  Report Type: 
  Country: None (occurrence: None)
  Receive Date: 20060814
  Receipt Date: 20060814
  Transmission Date: 20061208
  Serious: Yes (Other)
  Sender: FDA-Public Use
  Company Number: None

PATIENT
  Sex: Male
  Weight: 101.1521 kg

DRUGS (1)
  1. ZOCOR [Suspect]
     Indication: HYPERLIPIDAEMIA
     Dosage: 20MG PO QD
     Route: 048
     Dates: start: 20060609, end: 20060803

REACTIONS (3)
  - DRUG INTOLERANCE [None]
  - FATIGUE [None]
  - MUSCULAR WEAKNESS [None]
